FAERS Safety Report 23343974 (Version 4)
Quarter: 2024Q2

REPORT INFORMATION
  Report Type: Report from Study
  Country: GB (occurrence: GB)
  Receive Date: 20231227
  Receipt Date: 20240418
  Transmission Date: 20240716
  Serious: Yes (Hospitalization, Other)
  Sender: FDA-Public Use
  Company Number: GB-JNJFOC-20231249360

PATIENT
  Age: 72 Year
  Sex: Male

DRUGS (3)
  1. ERLEADA [Suspect]
     Active Substance: APALUTAMIDE
     Indication: Prostate cancer
     Route: 048
     Dates: start: 20231204, end: 20231218
  2. ERLEADA [Suspect]
     Active Substance: APALUTAMIDE
     Route: 048
  3. ERLEADA [Suspect]
     Active Substance: APALUTAMIDE
     Route: 048
     Dates: start: 20231204, end: 20240415

REACTIONS (5)
  - Pleural effusion [Recovered/Resolved]
  - Peripheral swelling [Recovered/Resolved]
  - Abdominal distension [Recovered/Resolved]
  - Prostatic specific antigen increased [Not Recovered/Not Resolved]
  - Back pain [Not Recovered/Not Resolved]

NARRATIVE: CASE EVENT DATE: 20231218
